FAERS Safety Report 11138712 (Version 1)
Quarter: 2015Q2

REPORT INFORMATION
  Report Type: Spontaneous
  Country: US (occurrence: US)
  Receive Date: 20150527
  Receipt Date: 20150527
  Transmission Date: 20150821
  Serious: No
  Sender: FDA-Public Use
  Company Number: US-NOVEN PHARMACEUTICALS, INC.-US2015000132

PATIENT
  Age: 48 Year
  Sex: Female

DRUGS (1)
  1. MINIVELLE [Suspect]
     Active Substance: ESTRADIOL
     Indication: HORMONE REPLACEMENT THERAPY
     Dosage: 0.1 MG, UNK
     Route: 062
     Dates: start: 20141222

REACTIONS (8)
  - Product quality issue [Unknown]
  - Wrong technique in drug usage process [Unknown]
  - Incorrect drug administration duration [Unknown]
  - Drug dose omission [Unknown]
  - Drug administered at inappropriate site [Unknown]
  - Drug ineffective [Unknown]
  - Fatigue [Not Recovered/Not Resolved]
  - Hypersomnia [Not Recovered/Not Resolved]
